FAERS Safety Report 10514591 (Version 1)
Quarter: 2014Q4

REPORT INFORMATION
  Report Type: Spontaneous
  Country: US (occurrence: US)
  Receive Date: 20141013
  Receipt Date: 20141013
  Transmission Date: 20150528
  Serious: No
  Sender: FDA-Public Use
  Company Number: US-TEVA-514075USA

PATIENT
  Sex: Female

DRUGS (1)
  1. COPAXONE [Suspect]
     Active Substance: GLATIRAMER ACETATE
     Indication: MULTIPLE SCLEROSIS
     Dates: start: 20140825, end: 20141003

REACTIONS (12)
  - Urticaria [Unknown]
  - Arthralgia [Not Recovered/Not Resolved]
  - Paranasal sinus discomfort [Unknown]
  - Migraine [Unknown]
  - Pruritus [Unknown]
  - Swollen tongue [Unknown]
  - Swelling [Unknown]
  - Muscle tightness [Unknown]
  - Headache [Unknown]
  - Paraesthesia [Not Recovered/Not Resolved]
  - Musculoskeletal stiffness [Unknown]
  - Rash [Unknown]

NARRATIVE: CASE EVENT DATE: 2014
